FAERS Safety Report 6970161-9 (Version None)
Quarter: 2010Q3

REPORT INFORMATION
  Report Type: 
  Country: None (occurrence: None)
  Receive Date: 20100903
  Receipt Date: 20100823
  Transmission Date: 20110219
  Serious: Yes (Other)
  Sender: FDA-Public Use
  Company Number: 010857

PATIENT

DRUGS (1)
  1. CILOSTAZOL [Suspect]

REACTIONS (1)
  - HAEMORRHAGE INTRACRANIAL [None]
